FAERS Safety Report 6667760-0 (Version None)
Quarter: 2010Q1

REPORT INFORMATION
  Report Type: 
  Country: None (occurrence: None)
  Receive Date: 20100331
  Receipt Date: 20100319
  Transmission Date: 20100710
  Serious: Yes (Other)
  Sender: FDA-Public Use
  Company Number: BEP10000004

PATIENT
  Sex: Female

DRUGS (1)
  1. ACTONEL [Suspect]
     Indication: OSTEOPOROSIS
     Dosage: CYCLIC 1/D, ORAL
     Route: 048
     Dates: start: 20091201

REACTIONS (1)
  - HEPATITIS [None]
